FAERS Safety Report 24694280 (Version 1)
Quarter: 2024Q4

REPORT INFORMATION
  Report Type: Spontaneous
  Country: US (occurrence: US)
  Receive Date: 20241204
  Receipt Date: 20241204
  Transmission Date: 20250114
  Serious: No
  Sender: Steriscience PTE
  Company Number: US-STERISCIENCE B.V.-2024-ST-001451

PATIENT
  Age: 39 Year
  Sex: Male

DRUGS (3)
  1. BUPIVACAINE [Suspect]
     Active Substance: BUPIVACAINE
     Indication: Skin disorder
     Dosage: 6 MILLILITER
  2. BUPIVACAINE [Suspect]
     Active Substance: BUPIVACAINE
     Indication: Pruritus
  3. BUPIVACAINE [Suspect]
     Active Substance: BUPIVACAINE
     Indication: Spinal disorder

REACTIONS (1)
  - Off label use [Unknown]
